FAERS Safety Report 6657472-1 (Version None)
Quarter: 2010Q1

REPORT INFORMATION
  Report Type: 
  Country: None (occurrence: None)
  Receive Date: 20100330
  Receipt Date: 20100319
  Transmission Date: 20100710
  Serious: Yes (Other)
  Sender: FDA-Public Use
  Company Number: PHHY2010BR17368

PATIENT
  Age: 64 Year
  Sex: Female
  Weight: 67 kg

DRUGS (2)
  1. ESTRADERM [Suspect]
     Indication: HORMONE REPLACEMENT THERAPY
     Dosage: 50 MCG
     Route: 062
  2. ESTRADERM [Suspect]
     Dosage: UNK
     Route: 062

REACTIONS (13)
  - ARTHRALGIA [None]
  - ASTHENIA [None]
  - DEPRESSED MOOD [None]
  - FEELINGS OF WORTHLESSNESS [None]
  - INFLUENZA LIKE ILLNESS [None]
  - MALAISE [None]
  - MENORRHAGIA [None]
  - PAIN [None]
  - SENSATION OF HEAVINESS [None]
  - TREATMENT NONCOMPLIANCE [None]
  - UTERINE ENLARGEMENT [None]
  - VAGINAL HAEMORRHAGE [None]
  - WEIGHT INCREASED [None]
